FAERS Safety Report 15779044 (Version 1)
Quarter: 2019Q1

REPORT INFORMATION
  Report Type: Spontaneous
  Country: CN (occurrence: CN)
  Receive Date: 20190101
  Receipt Date: 20190101
  Transmission Date: 20190417
  Serious: Yes (Other)
  Sender: FDA-Public Use
  Company Number: CN-ROCHE-2237885

PATIENT
  Age: 60 Year
  Sex: Female

DRUGS (11)
  1. CARBOPLATIN. [Concomitant]
     Active Substance: CARBOPLATIN
     Route: 065
     Dates: start: 201604
  2. TARCEVA [Suspect]
     Active Substance: ERLOTINIB HYDROCHLORIDE
     Indication: LUNG ADENOCARCINOMA
     Route: 065
     Dates: start: 201605, end: 201612
  3. AVASTIN [Suspect]
     Active Substance: BEVACIZUMAB
     Indication: LUNG ADENOCARCINOMA
     Route: 065
     Dates: start: 201508, end: 201509
  4. TARCEVA [Suspect]
     Active Substance: ERLOTINIB HYDROCHLORIDE
     Indication: HYDROTHORAX
  5. PACLITAXEL. [Concomitant]
     Active Substance: PACLITAXEL
     Route: 065
     Dates: start: 201604
  6. CARBOPLATIN. [Concomitant]
     Active Substance: CARBOPLATIN
     Indication: LUNG ADENOCARCINOMA
     Route: 065
     Dates: start: 201508, end: 201509
  7. AVASTIN [Suspect]
     Active Substance: BEVACIZUMAB
     Indication: HYDROTHORAX
     Route: 065
     Dates: start: 201511, end: 201603
  8. CARBOPLATIN. [Concomitant]
     Active Substance: CARBOPLATIN
     Indication: HYDROTHORAX
     Route: 065
     Dates: start: 201511, end: 201601
  9. PACLITAXEL. [Concomitant]
     Active Substance: PACLITAXEL
     Indication: HYDROTHORAX
     Route: 065
     Dates: start: 201511, end: 201601
  10. PACLITAXEL. [Concomitant]
     Active Substance: PACLITAXEL
     Route: 065
     Dates: start: 201612, end: 201702
  11. PACLITAXEL. [Concomitant]
     Active Substance: PACLITAXEL
     Indication: LUNG ADENOCARCINOMA
     Route: 065
     Dates: start: 201508, end: 201509

REACTIONS (3)
  - Drug resistance [Unknown]
  - Bone marrow failure [Unknown]
  - Gastrointestinal disorder [Unknown]

NARRATIVE: CASE EVENT DATE: 201612
